FAERS Safety Report 5627663-7 (Version None)
Quarter: 2008Q1

REPORT INFORMATION
  Report Type: 
  Country: None (occurrence: None)
  Receive Date: 20080214
  Receipt Date: 20080214
  Transmission Date: 20080703
  Serious: Yes (Death)
  Sender: FDA-Public Use
  Company Number: None

PATIENT
  Age: 15 Year
  Sex: Male
  Weight: 61 kg

DRUGS (1)
  1. NEOSYNEPHRINE LIQUID [Suspect]
     Indication: POST PROCEDURAL HAEMORRHAGE
     Dosage: UNMEASURED 1X INTRANASAL
     Dates: start: 20030721

REACTIONS (7)
  - BLOOD PRESSURE DECREASED [None]
  - BRADYCARDIA [None]
  - BRAIN INJURY [None]
  - CARDIO-RESPIRATORY ARREST [None]
  - CYANOSIS [None]
  - END-TIDAL CO2 DECREASED [None]
  - PROCEDURAL COMPLICATION [None]
